FAERS Safety Report 4766552-7 (Version None)
Quarter: 2005Q3

REPORT INFORMATION
  Report Type: 
  Country: None (occurrence: None)
  Receive Date: 20050909
  Receipt Date: 20050831
  Transmission Date: 20060218
  Serious: Yes (Hospitalization, Disabling, Other)
  Sender: FDA-Public Use
  Company Number: 2005122963

PATIENT
  Age: 50 Year
  Sex: Female
  Weight: 70 kg

DRUGS (6)
  1. DEPO-PROVERA [Suspect]
     Indication: CONTRACEPTION
     Dosage: SEE IMAGE
     Route: 030
     Dates: start: 19870101, end: 19870101
  2. DEPO-PROVERA [Suspect]
     Indication: CONTRACEPTION
     Dosage: SEE IMAGE
     Route: 030
     Dates: start: 20040602, end: 20040602
  3. CELEBREX [Suspect]
     Indication: PAIN
     Dosage: ORAL
     Route: 048
  4. FLUTIDE NASAL (FLUTICASONE PROPIONATE) [Concomitant]
  5. AERIUS (DESLORATADINE) [Concomitant]
  6. OMEGA 3 (FISH OIL) [Concomitant]

REACTIONS (11)
  - ARTHRALGIA [None]
  - BLOOD CALCIUM INCREASED [None]
  - FATIGUE [None]
  - MUSCULOSKELETAL STIFFNESS [None]
  - MYALGIA [None]
  - NECK PAIN [None]
  - OSTEOPOROSIS [None]
  - PAIN [None]
  - PAIN IN EXTREMITY [None]
  - PAIN IN JAW [None]
  - SHOULDER PAIN [None]
